FAERS Safety Report 8167183-1 (Version None)
Quarter: 2012Q1

REPORT INFORMATION
  Report Type: 
  Country: None (occurrence: None)
  Receive Date: 20120227
  Receipt Date: 20120213
  Transmission Date: 20120608
  Serious: Yes (Other)
  Sender: FDA-Public Use
  Company Number: CN-ELI_LILLY_AND_COMPANY-CN201202004259

PATIENT
  Age: 7 Year
  Sex: Female
  Weight: 25 kg

DRUGS (2)
  1. STRATTERA [Suspect]
     Indication: ATTENTION DEFICIT/HYPERACTIVITY DISORDER
     Dosage: 10 MG, QD
     Route: 048
     Dates: start: 20110829, end: 20110923
  2. STRATTERA [Suspect]
     Dosage: 25 MG, QD
     Route: 048
     Dates: start: 20110924, end: 20120110

REACTIONS (1)
  - TEMPORAL LOBE EPILEPSY [None]
